FAERS Safety Report 8188916-4 (Version None)
Quarter: 2012Q1

REPORT INFORMATION
  Report Type: 
  Country: None (occurrence: None)
  Receive Date: 20120306
  Receipt Date: 20120306
  Transmission Date: 20120608
  Serious: Yes (Death)
  Sender: FDA-Public Use
  Company Number: AU-ABBOTT-11P-008-0873486-00

PATIENT
  Sex: Male

DRUGS (3)
  1. LEUPROLIDE ACETATE [Suspect]
     Dates: start: 20100601
  2. LEUPROLIDE ACETATE [Suspect]
     Indication: PROSTATE CANCER
     Dates: start: 20070702, end: 20071217
  3. LEUPROLIDE ACETATE [Suspect]
     Dates: start: 20090518, end: 20091116

REACTIONS (2)
  - PNEUMONIA [None]
  - CARDIAC DISORDER [None]
